FAERS Safety Report 9948058 (Version 2)
Quarter: 2014Q1

REPORT INFORMATION
  Report Type: Report from Study
  Country: US (occurrence: US)
  Receive Date: 20140303
  Receipt Date: 20140303
  Transmission Date: 20141002
  Serious: No
  Sender: FDA-Public Use
  Company Number: US-ABBVIE-12P-163-1024499-00

PATIENT
  Age: 80 Year
  Sex: Male

DRUGS (16)
  1. HUMIRA [Suspect]
     Indication: RHEUMATOID ARTHRITIS
     Route: 058
     Dates: start: 20121108
  2. CYMBALTA [Suspect]
     Indication: NEUROPATHY PERIPHERAL
  3. CYMBALTA [Suspect]
     Indication: DEPRESSION
  4. SERTRALINE [Concomitant]
     Indication: DEPRESSION
  5. ACYCLOVIR [Concomitant]
     Indication: PROPHYLAXIS
  6. ACYCLOVIR [Concomitant]
     Indication: ORAL HERPES
  7. BUPROPION [Concomitant]
     Indication: DEPRESSION
  8. LOSARTAN [Concomitant]
     Indication: HYPERTENSION
  9. METHOTREXATE [Concomitant]
     Indication: PRODUCT USED FOR UNKNOWN INDICATION
  10. CLONAZEPAM [Concomitant]
     Indication: PANIC ATTACK
  11. RANITIDINE [Concomitant]
     Indication: GASTROOESOPHAGEAL REFLUX DISEASE
  12. AMLODIPINE [Concomitant]
     Indication: HYPERTENSION
  13. TAMSULOSIN [Concomitant]
     Indication: BENIGN PROSTATIC HYPERPLASIA
  14. SIMVASTATIN [Concomitant]
     Indication: HYPERTENSION
  15. DESMOPRESSIN ACETATE [Concomitant]
     Indication: THIRST
  16. DESMOPRESSIN ACETATE [Concomitant]
     Indication: POLLAKIURIA

REACTIONS (6)
  - Oral discomfort [Unknown]
  - Dry mouth [Unknown]
  - Lower respiratory tract infection [Recovering/Resolving]
  - Productive cough [Recovering/Resolving]
  - Dysphonia [Recovering/Resolving]
  - Cough [Recovering/Resolving]
